FAERS Safety Report 22590793 (Version 1)
Quarter: 2023Q2

REPORT INFORMATION
  Report Type: Spontaneous
  Country: GB (occurrence: GB)
  Receive Date: 20230612
  Receipt Date: 20230612
  Transmission Date: 20230722
  Serious: Yes (Death, Hospitalization, Other)
  Sender: FDA-Public Use
  Company Number: None

PATIENT
  Age: 48 Year

DRUGS (2)
  1. CYCLOSPORINE [Suspect]
     Active Substance: CYCLOSPORINE
     Indication: Erythrodermic psoriasis
     Dosage: 100 MILLIGRAM, BID
     Route: 065
     Dates: start: 20230208
  2. CYCLOSPORINE [Suspect]
     Active Substance: CYCLOSPORINE
     Dosage: 100 MILLIGRAM, BID
     Route: 065
     Dates: start: 20230419

REACTIONS (6)
  - Acute kidney injury [Fatal]
  - Duodenal perforation [Not Recovered/Not Resolved]
  - Hepatorenal syndrome [Not Recovered/Not Resolved]
  - Dehydration [Not Recovered/Not Resolved]
  - Jaundice [Not Recovered/Not Resolved]
  - Acute hepatic failure [Not Recovered/Not Resolved]
